FAERS Safety Report 23247864 (Version 1)
Quarter: 2023Q4

REPORT INFORMATION
  Report Type: Spontaneous
  Country: GB (occurrence: GB)
  Receive Date: 20231130
  Receipt Date: 20231130
  Transmission Date: 20240109
  Serious: Yes (Other)
  Sender: FDA-Public Use
  Company Number: None

PATIENT
  Age: 89 Year
  Sex: Female
  Weight: 58 kg

DRUGS (12)
  1. LEVETIRACETAM [Suspect]
     Active Substance: LEVETIRACETAM
     Dosage: UNK
  2. CALCIUM CARBONATE [Concomitant]
     Active Substance: CALCIUM CARBONATE
     Dosage: 2 DF, 2X/DAY
     Dates: start: 20221220
  3. AMLODIPINE [Concomitant]
     Active Substance: AMLODIPINE BESYLATE
     Dosage: 1DF 1X/DAY AT NIGHT
     Dates: start: 20231122
  4. CARBOMER [Concomitant]
     Active Substance: CARBOMER
     Dosage: ONE DROP 3-4 TIMES/DAY
     Dates: start: 20221220
  5. CLOPIDOGREL [Concomitant]
     Active Substance: CLOPIDOGREL BISULFATE
     Dosage: 1 DF, 1X/DAY
     Dates: start: 20221220
  6. LAMOTRIGINE [Concomitant]
     Active Substance: LAMOTRIGINE
     Dosage: 1 DF 1X/DAY AT NIGHT
     Dates: start: 20231122
  7. LOSARTAN [Concomitant]
     Active Substance: LOSARTAN
     Dosage: 1 DF, 1X/DAY
     Dates: start: 20221220, end: 20231122
  8. POLYETHYLENE GLYCOLS [Concomitant]
     Active Substance: POLYETHYLENE GLYCOLS
     Dosage: 1 DF, 1X/DAY, SACHET. CAN INCREASE TO TWICE DA...
     Dates: start: 20221220
  9. MIRTAZAPINE [Concomitant]
     Active Substance: MIRTAZAPINE
     Dosage: 1 DF, 1X/DAY AT NIGHT
     Dates: start: 20231122
  10. ACETAMINOPHEN [Concomitant]
     Active Substance: ACETAMINOPHEN
     Dosage: ONE TO TWO TO BE TAKEN FOUR TIMES DAILY IF REQU...
     Dates: start: 20221220
  11. ROSUVASTATIN [Concomitant]
     Active Substance: ROSUVASTATIN
     Dosage: 1 DF, 1X/DAY
     Dates: start: 20221220, end: 20231122
  12. VORTIOXETINE [Concomitant]
     Active Substance: VORTIOXETINE
     Dosage: 1 DF, 1X/DAY
     Dates: start: 20230414, end: 20231122

REACTIONS (5)
  - Confusional state [Recovered/Resolved]
  - Dizziness [Unknown]
  - Balance disorder [Unknown]
  - Emotional distress [Unknown]
  - Anxiety [Unknown]
